FAERS Safety Report 5411886-6 (Version None)
Quarter: 2007Q3

REPORT INFORMATION
  Report Type: 
  Country: None (occurrence: None)
  Receive Date: 20070813
  Receipt Date: 20070802
  Transmission Date: 20080115
  Serious: Yes (Other)
  Sender: FDA-Public Use
  Company Number: US-JNJFOC-20070801269

PATIENT
  Sex: Male
  Weight: 83.92 kg

DRUGS (3)
  1. FENTANYL TRANSDERMAL SYSTEM [Suspect]
     Indication: PAIN
     Route: 062
  2. MOBIC [Concomitant]
     Indication: PAIN
     Route: 048
  3. PREVACID [Concomitant]
     Indication: STOMACH DISCOMFORT
     Route: 048

REACTIONS (5)
  - DRUG DISPENSING ERROR [None]
  - FEELING ABNORMAL [None]
  - INAPPROPRIATE SCHEDULE OF DRUG ADMINISTRATION [None]
  - PHARMACEUTICAL PRODUCT COMPLAINT [None]
  - SKIN ULCER [None]
